FAERS Safety Report 6597076-2 (Version None)
Quarter: 2010Q1

REPORT INFORMATION
  Report Type: 
  Country: None (occurrence: None)
  Receive Date: 20100223
  Receipt Date: 20100215
  Transmission Date: 20100710
  Serious: Yes (Life-Threatening)
  Sender: FDA-Public Use
  Company Number: B0635226A

PATIENT
  Age: 38 Year
  Sex: Female
  Weight: 65 kg

DRUGS (1)
  1. AUGMENTIN [Suspect]
     Indication: TOOTH INFECTION
     Dosage: 875MG PER DAY
     Route: 048
     Dates: start: 20100119, end: 20100119

REACTIONS (1)
  - ANAPHYLACTIC SHOCK [None]
